FAERS Safety Report 16589464 (Version 1)
Quarter: 2019Q3

REPORT INFORMATION
  Report Type: Spontaneous
  Country: IN (occurrence: IN)
  Receive Date: 20190718
  Receipt Date: 20190718
  Transmission Date: 20191004
  Serious: Yes (Hospitalization, Disabling, Other)
  Sender: FDA-Public Use
  Company Number: IN-SA-2019SA190784

PATIENT
  Age: 12 Month
  Sex: Male

DRUGS (4)
  1. RIFAMPICIN [Suspect]
     Active Substance: RIFAMPIN
     Indication: LYMPH NODE TUBERCULOSIS
     Dosage: UNK
  2. ETHAMBUTOL [Suspect]
     Active Substance: ETHAMBUTOL HYDROCHLORIDE
     Indication: LYMPH NODE TUBERCULOSIS
     Dosage: UNK
  3. PYRAZINAMIDE. [Suspect]
     Active Substance: PYRAZINAMIDE
     Indication: LYMPH NODE TUBERCULOSIS
     Dosage: UNK
  4. ISONIAZID. [Suspect]
     Active Substance: ISONIAZID
     Indication: LYMPH NODE TUBERCULOSIS
     Dosage: UNK

REACTIONS (8)
  - Immune reconstitution inflammatory syndrome associated tuberculosis [Recovered/Resolved]
  - Deafness [Recovered/Resolved]
  - Paradoxical drug reaction [Recovered/Resolved]
  - Product administered to patient of inappropriate age [Unknown]
  - Oedema [Recovered/Resolved]
  - Blindness [Recovered/Resolved]
  - Visual impairment [Recovered/Resolved]
  - Tuberculoma of central nervous system [Recovered/Resolved]
